FAERS Safety Report 7949147-3 (Version None)
Quarter: 2011Q4

REPORT INFORMATION
  Report Type: 
  Country: None (occurrence: None)
  Receive Date: 20111130
  Receipt Date: 20111117
  Transmission Date: 20120403
  Serious: Yes (Other)
  Sender: FDA-Public Use
  Company Number: DK-ROCHE-1014474

PATIENT
  Sex: Male

DRUGS (3)
  1. HALOTESTIN [Concomitant]
  2. CLONAZEPAM [Suspect]
     Indication: PRODUCT USED FOR UNKNOWN INDICATION
     Route: 048
  3. BENZODIAZEPINE NOS [Concomitant]

REACTIONS (8)
  - GENERAL PHYSICAL HEALTH DETERIORATION [None]
  - DIARRHOEA [None]
  - HEADACHE [None]
  - HALLUCINATION [None]
  - PSYCHOTIC DISORDER [None]
  - THINKING ABNORMAL [None]
  - TREATMENT FAILURE [None]
  - URINARY INCONTINENCE [None]
